FAERS Safety Report 5089620-1 (Version None)
Quarter: 2006Q3

REPORT INFORMATION
  Report Type: 
  Country: None (occurrence: None)
  Receive Date: 20060822
  Receipt Date: 20060802
  Transmission Date: 20061208
  Serious: Yes (Other)
  Sender: FDA-Public Use
  Company Number: US200608000616

PATIENT
  Sex: Female

DRUGS (5)
  1. CYMBALTA [Suspect]
     Indication: PAIN
     Dosage: 60 MG, 2/D
     Dates: start: 20050101
  2. THYROID TAB [Concomitant]
  3. VICODIN [Concomitant]
  4. LIPITOR [Concomitant]
  5. FENTANYL [Concomitant]

REACTIONS (4)
  - CRYING [None]
  - HIP FRACTURE [None]
  - NODULE [None]
  - STRESS [None]
